FAERS Safety Report 13036054 (Version 1)
Quarter: 2016Q4

REPORT INFORMATION
  Report Type: Spontaneous
  Country: US (occurrence: US)
  Receive Date: 20161216
  Receipt Date: 20161216
  Transmission Date: 20170207
  Serious: Yes (Hospitalization)
  Sender: FDA-Public Use
  Company Number: US-CELGENEUS-USA-2016120993

PATIENT
  Age: 80 Year
  Sex: Male

DRUGS (2)
  1. OTEZLA [Suspect]
     Active Substance: APREMILAST
     Dosage: 30MG
     Route: 048
     Dates: start: 20161023
  2. OTEZLA [Suspect]
     Active Substance: APREMILAST
     Indication: PSORIATIC ARTHROPATHY
     Dosage: 30MG
     Route: 048
     Dates: start: 201512, end: 20161021

REACTIONS (1)
  - Gallbladder disorder [Recovered/Resolved]

NARRATIVE: CASE EVENT DATE: 20161020
